FAERS Safety Report 11262578 (Version 1)
Quarter: 2015Q3

REPORT INFORMATION
  Report Type: Spontaneous
  Country: US (occurrence: US)
  Receive Date: 20150710
  Receipt Date: 20150710
  Transmission Date: 20151125
  Serious: Yes (Other)
  Sender: FDA-Public Use
  Company Number: US-ASTRAZENECA-2015SE67071

PATIENT
  Age: 73 Year
  Sex: Female

DRUGS (3)
  1. FASLODEX [Suspect]
     Active Substance: FULVESTRANT
     Route: 030
     Dates: start: 201110, end: 20150330
  2. PALBOCICLIB( NON-AZ) [Suspect]
     Active Substance: PALBOCICLIB
     Indication: BREAST CANCER METASTATIC
     Route: 048
     Dates: start: 20150410, end: 20150504
  3. EXEMESTANE. [Suspect]
     Active Substance: EXEMESTANE
     Indication: BREAST CANCER METASTATIC
     Route: 048
     Dates: start: 20150410, end: 20150504

REACTIONS (13)
  - Hypertension [Unknown]
  - Hot flush [Unknown]
  - Pancytopenia [Recovered/Resolved]
  - Platelet count decreased [Recovered/Resolved]
  - Anaemia [Recovered/Resolved]
  - Neck pain [Unknown]
  - Thyroid neoplasm [Unknown]
  - Fatigue [Unknown]
  - Arthralgia [Unknown]
  - Neutropenia [Recovered/Resolved]
  - Fibromyalgia [Unknown]
  - Back pain [Unknown]
  - Depression [Unknown]

NARRATIVE: CASE EVENT DATE: 20150504
